FAERS Safety Report 17572837 (Version 1)
Quarter: 2020Q1

REPORT INFORMATION
  Report Type: Spontaneous
  Country: US (occurrence: US)
  Receive Date: 20200323
  Receipt Date: 20200323
  Transmission Date: 20200409
  Serious: Yes (Hospitalization, Other)
  Sender: FDA-Public Use
  Company Number: None

PATIENT
  Age: 69 Year
  Sex: Male

DRUGS (1)
  1. GEMCITABINE. [Suspect]
     Active Substance: GEMCITABINE
     Dosage: ?          OTHER FREQUENCY:PER C1D8;?
     Dates: start: 20200310

REACTIONS (12)
  - Rash [None]
  - Leukocytosis [None]
  - Pruritus [None]
  - Erythema [None]
  - Skin reaction [None]
  - Adverse drug reaction [None]
  - Generalised oedema [None]
  - Blister [None]
  - Skin weeping [None]
  - Swelling [None]
  - Scab [None]
  - Body temperature increased [None]

NARRATIVE: CASE EVENT DATE: 20200321
